FAERS Safety Report 23919322 (Version 2)
Quarter: 2024Q2

REPORT INFORMATION
  Report Type: Spontaneous
  Country: US (occurrence: US)
  Receive Date: 20240530
  Receipt Date: 20240611
  Transmission Date: 20240716
  Serious: Yes (Life-Threatening, Hospitalization)
  Sender: FDA-Public Use
  Company Number: US-TEVA-VS-3201905

PATIENT
  Age: 66 Year
  Sex: Male

DRUGS (1)
  1. LAMOTRIGINE [Suspect]
     Active Substance: LAMOTRIGINE
     Indication: Bipolar disorder
     Dosage: IMMEDIATE RELEASE; INGESTION OF A 21G
     Route: 048

REACTIONS (2)
  - Cardiotoxicity [Recovered/Resolved]
  - Overdose [Unknown]
